FAERS Safety Report 6419207-7 (Version None)
Quarter: 2009Q4

REPORT INFORMATION
  Report Type: 
  Country: None (occurrence: None)
  Receive Date: 20091028
  Receipt Date: 20091028
  Transmission Date: 20100525
  Serious: Yes (Hospitalization)
  Sender: FDA-Public Use
  Company Number: None

PATIENT
  Sex: Female
  Weight: 31.3 kg

DRUGS (6)
  1. PEG L-ASPARGINASE [Suspect]
     Indication: NATURAL KILLER-CELL LYMPHOBLASTIC LYMPHOMA
     Dosage: 2500 IU -2500 IU/M2- ONCE IM
     Route: 030
     Dates: start: 20090808, end: 20090808
  2. IFOSFAMIDE [Concomitant]
  3. DAUNOMYCIN [Concomitant]
  4. PREDNISONE [Concomitant]
  5. IT MTX [Concomitant]
  6. CYCLOPHOSPHAMIDE [Concomitant]

REACTIONS (11)
  - ABDOMINAL PAIN [None]
  - ANTITHROMBIN III DECREASED [None]
  - BLOOD LACTIC ACID DECREASED [None]
  - COAGULOPATHY [None]
  - HEPATIC ENCEPHALOPATHY [None]
  - HEPATIC STEATOSIS [None]
  - HEPATOTOXICITY [None]
  - HYPERAMMONAEMIA [None]
  - LACTIC ACIDOSIS [None]
  - NAUSEA [None]
  - VOMITING [None]
